FAERS Safety Report 6404881-1 (Version None)
Quarter: 2009Q4

REPORT INFORMATION
  Report Type: 
  Country: None (occurrence: None)
  Receive Date: 20091019
  Receipt Date: 20091009
  Transmission Date: 20100525
  Serious: Yes (Hospitalization)
  Sender: FDA-Public Use
  Company Number: US-ELI_LILLY_AND_COMPANY-US200910002084

PATIENT
  Sex: Female

DRUGS (3)
  1. HUMULIN N [Suspect]
     Dosage: 5 U, DAILY (1/D)
     Dates: start: 19940101
  2. HUMULIN N [Suspect]
     Dosage: UNK, UNKNOWN
  3. GLYBURIDE [Concomitant]

REACTIONS (11)
  - CATARACT [None]
  - DIABETIC RETINOPATHY [None]
  - GLAUCOMA [None]
  - HIP FRACTURE [None]
  - MEDICATION ERROR [None]
  - PELVIC FRACTURE [None]
  - SPINAL FRACTURE [None]
  - TOE AMPUTATION [None]
  - VENOUS OPERATION [None]
  - VISUAL ACUITY REDUCED [None]
  - VISUAL IMPAIRMENT [None]
